FAERS Safety Report 6917788-8 (Version None)
Quarter: 2010Q3

REPORT INFORMATION
  Report Type: 
  Country: None (occurrence: None)
  Receive Date: 20100810
  Receipt Date: 20100726
  Transmission Date: 20110219
  Serious: Yes (Death, Hospitalization)
  Sender: FDA-Public Use
  Company Number: NL-GENENTECH-304145

PATIENT
  Sex: Male
  Weight: 79.7 kg

DRUGS (12)
  1. RITUXIMAB [Suspect]
     Indication: CHRONIC LYMPHOCYTIC LEUKAEMIA
     Dosage: 750 MG, UNK
     Route: 042
     Dates: start: 20100616
  2. DEXAMETHASONE [Suspect]
     Indication: CHRONIC LYMPHOCYTIC LEUKAEMIA
     Dosage: 360 MG, UNK
     Route: 042
     Dates: start: 20100616
  3. CISPLATIN [Suspect]
     Indication: CHRONIC LYMPHOCYTIC LEUKAEMIA
     Dosage: 200 MG, UNK
     Route: 042
     Dates: start: 20100616
  4. CYTARABINE [Suspect]
     Indication: CHRONIC LYMPHOCYTIC LEUKAEMIA
     Dosage: 4000 MG, UNK
     Route: 042
     Dates: start: 20100617
  5. NEUPOGEN [Concomitant]
     Indication: NEUTROPENIA
     Dosage: 480 MG, UNK
     Route: 058
     Dates: start: 20100318, end: 20100624
  6. ACYCLOVIR [Concomitant]
     Indication: ANTIVIRAL PROPHYLAXIS
     Dosage: 800 MG, UNK
     Route: 048
     Dates: start: 20100327, end: 20100627
  7. FOLIC ACID [Concomitant]
     Indication: PROPHYLAXIS
     Dosage: 4 MG, UNK
     Route: 048
     Dates: start: 20100327, end: 20100627
  8. OMEPRAZOLE [Concomitant]
     Indication: ABDOMINAL PAIN UPPER
     Dosage: 40 MG, UNK
     Route: 048
     Dates: start: 20100623, end: 20100627
  9. CIPROFLOXACIN [Concomitant]
     Indication: INFECTION PROPHYLAXIS
     Dosage: 1000 MG, UNK
     Route: 048
     Dates: start: 20100327, end: 20100627
  10. PENTAMIDINE ISETHIONATE [Concomitant]
     Indication: INFECTION PROPHYLAXIS
     Dosage: UNK
     Route: 048
     Dates: start: 20100324, end: 20100627
  11. FLUCONAZOLE [Concomitant]
     Indication: ANTIFUNGAL PROPHYLAXIS
     Dosage: 200 MG, UNK
     Route: 048
     Dates: start: 20100327, end: 20100627
  12. ULTRA-K [Concomitant]
     Indication: OEDEMA
     Dosage: 45 UNK, UNK
     Route: 042
     Dates: start: 20100623, end: 20100627

REACTIONS (2)
  - ENCEPHALITIC INFECTION [None]
  - FEBRILE NEUTROPENIA [None]
